FAERS Safety Report 26076800 (Version 1)
Quarter: 2025Q4

REPORT INFORMATION
  Report Type: Spontaneous
  Country: EU (occurrence: EU)
  Receive Date: 20251121
  Receipt Date: 20251121
  Transmission Date: 20260118
  Serious: Yes (Other)
  Sender: ELI LILLY AND COMPANY
  Company Number: EU-Merck Healthcare KGaA-2025058111

PATIENT
  Age: 55 Year
  Sex: Male

DRUGS (3)
  1. ERBITUX [Suspect]
     Active Substance: CETUXIMAB
     Indication: Head and neck cancer metastatic
     Dosage: 175 MG, WEEKLY (1/W)
     Route: 065
     Dates: start: 20210414
  2. DOCETAXEL [Suspect]
     Active Substance: DOCETAXEL
     Indication: Head and neck cancer metastatic
     Dosage: UNK UNK, UNKNOWN
     Route: 065
     Dates: start: 20210414
  3. CISPLATIN [Suspect]
     Active Substance: CISPLATIN
     Indication: Head and neck cancer metastatic
     Dosage: UNK UNK, UNKNOWN
     Route: 065
     Dates: start: 20210414

REACTIONS (1)
  - Hepatitis [Recovered/Resolved]
